FAERS Safety Report 6292047-8 (Version None)
Quarter: 2009Q3

REPORT INFORMATION
  Report Type: 
  Country: None (occurrence: None)
  Receive Date: 20090731
  Receipt Date: 20090724
  Transmission Date: 20100115
  Serious: Yes (Other)
  Sender: FDA-Public Use
  Company Number: US-BIOGENIDEC-2009BI018865

PATIENT
  Age: 68 Year
  Sex: Female
  Weight: 70 kg

DRUGS (1)
  1. TYSABRI [Suspect]
     Indication: MULTIPLE SCLEROSIS
     Route: 042
     Dates: start: 20061226, end: 20090531

REACTIONS (4)
  - ABDOMINAL PAIN UPPER [None]
  - METASTATIC NEOPLASM [None]
  - SMALL CELL LUNG CANCER STAGE UNSPECIFIED [None]
  - WEIGHT DECREASED [None]
